FAERS Safety Report 10019960 (Version 1)
Quarter: 2014Q1

REPORT INFORMATION
  Report Type: Spontaneous
  Country: US (occurrence: US)
  Receive Date: 20140318
  Receipt Date: 20140318
  Transmission Date: 20141002
  Serious: Yes (Hospitalization)
  Sender: FDA-Public Use
  Company Number: US-DAIICHI SANKYO INCORPORATION-DSU-2014-100793

PATIENT
  Sex: 0

DRUGS (7)
  1. AZOR [Suspect]
     Indication: HYPERTENSION
     Dosage: 10/20 MG, QD
     Route: 048
     Dates: start: 2009, end: 201403
  2. AZOR [Suspect]
     Dosage: 5/20 MG, QD
     Route: 048
     Dates: start: 201403, end: 201403
  3. AZOR [Suspect]
     Dosage: 10/20 MG, QD
     Route: 048
     Dates: start: 201403, end: 201403
  4. AZOR [Suspect]
     Dosage: 5/20 MG, QD
     Route: 048
     Dates: start: 201403
  5. PERCOCET /00446701/ [Suspect]
     Indication: PAIN
     Dosage: UNK
     Route: 048
     Dates: start: 201402, end: 2014
  6. PERCOCET /00446701/ [Suspect]
     Dosage: UNK
     Route: 048
     Dates: start: 2014
  7. IRON SULFATE [Concomitant]
     Indication: MINERAL SUPPLEMENTATION
     Dosage: UNK
     Dates: start: 201401

REACTIONS (7)
  - Knee arthroplasty [Recovered/Resolved]
  - Blood pressure increased [Unknown]
  - Tooth fracture [Recovered/Resolved]
  - Pain [Recovering/Resolving]
  - Gastrooesophageal reflux disease [Recovering/Resolving]
  - Presyncope [Recovered/Resolved]
  - Blood pressure decreased [Recovered/Resolved]
